FAERS Safety Report 19223012 (Version 1)
Quarter: 2021Q2

REPORT INFORMATION
  Report Type: Spontaneous
  Country: CN (occurrence: CN)
  Receive Date: 20210505
  Receipt Date: 20210505
  Transmission Date: 20210717
  Serious: Yes (Hospitalization)
  Sender: FDA-Public Use
  Company Number: CN-ELI_LILLY_AND_COMPANY-CN202104011976

PATIENT
  Age: 74 Year
  Sex: Male
  Weight: 74 kg

DRUGS (2)
  1. HUMALOG MIX50/50 [Suspect]
     Active Substance: INSULIN LISPRO
     Indication: DIABETES MELLITUS
     Dosage: 16 U, EACH MORNING
     Route: 058
     Dates: start: 20210416, end: 20210418
  2. HUMALOG MIX50/50 [Suspect]
     Active Substance: INSULIN LISPRO
     Dosage: 14 U, EACH EVENING
     Route: 058
     Dates: start: 20210416, end: 20210418

REACTIONS (7)
  - Hypoglycaemia [Recovered/Resolved]
  - Amaurosis [Unknown]
  - Palpitations [Unknown]
  - Restlessness [Unknown]
  - Insomnia [Unknown]
  - Dizziness [Unknown]
  - Chills [Unknown]

NARRATIVE: CASE EVENT DATE: 20210418
